FAERS Safety Report 8913973 (Version 2)
Quarter: 2013Q1

REPORT INFORMATION
  Report Type: Spontaneous
  Country: US (occurrence: US)
  Receive Date: 20121119
  Receipt Date: 20130131
  Transmission Date: 20140127
  Serious: Yes (Other)
  Sender: FDA-Public Use
  Company Number: US-ELI_LILLY_AND_COMPANY-US201211003316

PATIENT
  Sex: Male

DRUGS (2)
  1. HUMULIN NPH [Suspect]
     Indication: DIABETES MELLITUS
     Dosage: UNK, BID
     Dates: start: 1980
  2. NOVOLIN [Concomitant]

REACTIONS (5)
  - Blindness [Not Recovered/Not Resolved]
  - Prostate cancer [Unknown]
  - Fall [Recovered/Resolved]
  - Wrist fracture [Recovering/Resolving]
  - Urinary incontinence [Not Recovered/Not Resolved]
